FAERS Safety Report 16669037 (Version 3)
Quarter: 2019Q3

REPORT INFORMATION
  Report Type: Report from Study
  Country: PE (occurrence: PE)
  Receive Date: 20190805
  Receipt Date: 20190912
  Transmission Date: 20191004
  Serious: Yes (Death, Hospitalization, Other)
  Sender: FDA-Public Use
  Company Number: PE-SEATTLE GENETICS-2019SGN00536

PATIENT
  Sex: Male

DRUGS (1)
  1. BRENTUXIMAB VEDOTIN-MPI [Suspect]
     Active Substance: BRENTUXIMAB VEDOTIN
     Indication: CUTANEOUS T-CELL LYMPHOMA
     Dosage: 97 MILLIGRAM
     Route: 042
     Dates: start: 20180907

REACTIONS (9)
  - Decreased appetite [Unknown]
  - Pneumonia [Unknown]
  - White blood cell count decreased [Unknown]
  - Ascites [Unknown]
  - Weight decreased [Unknown]
  - Pain in extremity [Unknown]
  - Tuberculosis [Fatal]
  - Headache [Unknown]
  - Nausea [Unknown]
